FAERS Safety Report 6377186-5 (Version None)
Quarter: 2009Q3

REPORT INFORMATION
  Report Type: 
  Country: None (occurrence: None)
  Receive Date: 20090925
  Receipt Date: 20090916
  Transmission Date: 20100115
  Serious: Yes (Death, Hospitalization)
  Sender: FDA-Public Use
  Company Number: A0725418A

PATIENT
  Age: 45 Year
  Sex: Male
  Weight: 109.1 kg

DRUGS (5)
  1. AVANDIA [Suspect]
     Indication: TYPE 2 DIABETES MELLITUS
     Dosage: 2MG TWICE PER DAY
     Route: 048
     Dates: start: 20050921, end: 20060630
  2. DIOVAN [Concomitant]
  3. ZOCOR [Concomitant]
  4. GLIPIZIDE [Concomitant]
  5. METFORMIN [Concomitant]

REACTIONS (1)
  - MYOCARDIAL INFARCTION [None]
